FAERS Safety Report 9915769 (Version 1)
Quarter: 2014Q1

REPORT INFORMATION
  Report Type: Spontaneous
  Country: US (occurrence: None)
  Receive Date: 20140219
  Receipt Date: 20140219
  Transmission Date: 20141002
  Serious: Yes (Life-Threatening, Hospitalization)
  Sender: FDA-Public Use
  Company Number: None

PATIENT
  Age: 69 Year
  Sex: Male
  Weight: 131.4 kg

DRUGS (2)
  1. CARVEDILOL [Suspect]
     Indication: HYPERTENSION
     Route: 048
     Dates: start: 20140129, end: 20140211
  2. TRAMADOL [Suspect]
     Indication: PAIN
     Route: 048
     Dates: start: 20140122, end: 20140130

REACTIONS (4)
  - Disorientation [None]
  - Ileus [None]
  - Angioedema [None]
  - Atelectasis [None]
